FAERS Safety Report 20849678 (Version 1)
Quarter: 2022Q2

REPORT INFORMATION
  Report Type: Spontaneous
  Country: CN (occurrence: CN)
  Receive Date: 20220519
  Receipt Date: 20220519
  Transmission Date: 20220720
  Serious: Yes (Hospitalization)
  Sender: FDA-Public Use
  Company Number: CN-BoehringerIngelheim-2022-BI-170569

PATIENT
  Age: 57 Year
  Sex: Female
  Weight: 53.500 kg

DRUGS (2)
  1. JARDIANCE [Suspect]
     Active Substance: EMPAGLIFLOZIN
     Indication: Hyperglycaemia
     Route: 048
     Dates: start: 20220105, end: 20220117
  2. PIOGLITAZONE AND METFORMIN [Suspect]
     Active Substance: METFORMIN HYDROCHLORIDE\PIOGLITAZONE HYDROCHLORIDE
     Indication: Hyperglycaemia
     Dosage: 1 DOSAGE FORM
     Route: 048
     Dates: start: 20220105, end: 20220117

REACTIONS (4)
  - Rash [Recovering/Resolving]
  - Pruritus [Recovering/Resolving]
  - Drug eruption [Recovering/Resolving]
  - Off label use [Unknown]

NARRATIVE: CASE EVENT DATE: 20220110
